FAERS Safety Report 9252612 (Version 1)
Quarter: 2013Q2

REPORT INFORMATION
  Report Type: Spontaneous
  Country: US (occurrence: US)
  Receive Date: 20130424
  Receipt Date: 20130424
  Transmission Date: 20140414
  Serious: Yes (Other)
  Sender: FDA-Public Use
  Company Number: US-PFIZER INC-2013074133

PATIENT
  Age: 61 Year
  Sex: Male
  Weight: 88.44 kg

DRUGS (4)
  1. ROBITUSSIN PEAK COLD MAXIMUM STRENGTH COUGH PLUS CHEST CONGESTION DM [Suspect]
     Indication: COUGH
     Dosage: UNK, 6X/DAY
     Route: 048
     Dates: start: 201212, end: 201212
  2. ROBITUSSIN PEAK COLD MAXIMUM STRENGTH COUGH PLUS CHEST CONGESTION DM [Suspect]
     Indication: RESPIRATORY TRACT CONGESTION
  3. MAGNESIUM [Concomitant]
     Dosage: UNK
  4. ASPIRIN [Concomitant]
     Dosage: UNK

REACTIONS (8)
  - Drug ineffective [Unknown]
  - Condition aggravated [Unknown]
  - Cough [Unknown]
  - Activities of daily living impaired [Unknown]
  - Muscle spasms [Unknown]
  - Impaired work ability [Unknown]
  - Sexual dysfunction [Unknown]
  - Frostbite [Unknown]
